FAERS Safety Report 11919914 (Version 2)
Quarter: 2016Q2

REPORT INFORMATION
  Report Type: Spontaneous
  Country: US (occurrence: US)
  Receive Date: 20160115
  Receipt Date: 20160419
  Transmission Date: 20160815
  Serious: No
  Sender: FDA-Public Use
  Company Number: US-ASTRAZENECA-2016SE04011

PATIENT
  Age: 84 Year
  Sex: Male
  Weight: 79 kg

DRUGS (7)
  1. LUMIGAN [Concomitant]
     Active Substance: BIMATOPROST
     Indication: GLAUCOMA
     Dosage: ONE DROP IN EACH EYE DAILY
  2. COUMADIN [Concomitant]
     Active Substance: WARFARIN SODIUM
     Indication: COAGULOPATHY
     Dosage: 7.5 MG, MON, WED, FRI, 5 MG, THE OTHER 4 DAYS OF THE WEEK
  3. NEXIUM 24HR [Suspect]
     Active Substance: ESOMEPRAZOLE MAGNESIUM
     Indication: GASTROOESOPHAGEAL REFLUX DISEASE
     Dosage: 2 CAPSULES, 20MG EACH, BY MOUTH DAILY.
     Route: 048
  4. CENTRUM SILVER [Concomitant]
     Active Substance: MINERALS\VITAMINS
     Indication: VITAMIN SUPPLEMENTATION
     Dosage: 1 DF, DAILY
     Route: 048
  5. NEXIUM 24HR [Suspect]
     Active Substance: ESOMEPRAZOLE MAGNESIUM
     Indication: PROPHYLAXIS
     Dosage: 2 CAPSULES, 20MG EACH, BY MOUTH DAILY.
     Route: 048
  6. COMBIGAN [Concomitant]
     Active Substance: BRIMONIDINE TARTRATE\TIMOLOL MALEATE
     Indication: GLAUCOMA
  7. AMLODIPINE BESYLATE. [Concomitant]
     Active Substance: AMLODIPINE BESYLATE
     Indication: BLOOD PRESSURE ABNORMAL
     Dosage: 1 PILL OF 2.5 MG BY MOUTH DAILY
     Route: 048

REACTIONS (6)
  - Abdominal discomfort [Recovered/Resolved]
  - Gastrointestinal disorder [Recovered/Resolved]
  - Reaction to preservatives [Recovered/Resolved]
  - Product use issue [Recovered/Resolved]
  - Abdominal pain upper [Recovered/Resolved]
  - Intentional product misuse [Recovered/Resolved]
